FAERS Safety Report 24253488 (Version 2)
Quarter: 2024Q3

REPORT INFORMATION
  Report Type: Spontaneous
  Country: MX (occurrence: MX)
  Receive Date: 20240827
  Receipt Date: 20240926
  Transmission Date: 20241016
  Serious: Yes (Hospitalization)
  Sender: PFIZER
  Company Number: MX-PFIZER INC-202400242802

PATIENT
  Age: 55 Year
  Sex: Female
  Weight: 83 kg

DRUGS (4)
  1. RIMEGEPANT [Suspect]
     Active Substance: RIMEGEPANT
     Indication: Migraine
     Dosage: 75 MG (ONE DAY YES AND ONE DAY SKIP)
     Route: 048
     Dates: start: 20240731, end: 20240807
  2. QUETIAPINE FUMARATE [Suspect]
     Active Substance: QUETIAPINE FUMARATE
     Dosage: 1 TAB AL DIARIA
     Dates: start: 20240726, end: 20240807
  3. ABREVA [Suspect]
     Active Substance: DOCOSANOL
     Dosage: 30 MG, DAILY
  4. BETAMETHASONE DIPROPIONATE [Suspect]
     Active Substance: BETAMETHASONE DIPROPIONATE
     Dosage: 7 MG, SINGLE

REACTIONS (4)
  - Dysstasia [Recovering/Resolving]
  - Gait inability [Recovering/Resolving]
  - Condition aggravated [Recovering/Resolving]
  - Wheelchair user [Unknown]

NARRATIVE: CASE EVENT DATE: 20240801
